FAERS Safety Report 14895740 (Version 2)
Quarter: 2018Q2

REPORT INFORMATION
  Report Type: Report from Study
  Country: TH (occurrence: TH)
  Receive Date: 20180515
  Receipt Date: 20180609
  Transmission Date: 20180711
  Serious: Yes (Death, Hospitalization, Other)
  Sender: FDA-Public Use
  Company Number: TH-AMGEN-THASL2018048618

PATIENT
  Age: 63 Year
  Sex: Male

DRUGS (1)
  1. KYPROLIS [Suspect]
     Active Substance: CARFILZOMIB
     Indication: PLASMA CELL MYELOMA
     Dosage: 20 MG/M2, (30 MG PER DAY/ 6 DAYS PER CYCLE, ON DAY 1,2,15,16,29,30) (1 CYCLE)
     Route: 042
     Dates: start: 20180306

REACTIONS (3)
  - Sepsis [Fatal]
  - Off label use [Unknown]
  - Fatigue [Unknown]

NARRATIVE: CASE EVENT DATE: 2018
